FAERS Safety Report 4488686-7 (Version None)
Quarter: 2004Q4

REPORT INFORMATION
  Report Type: 
  Country: None (occurrence: None)
  Receive Date: 20041025
  Receipt Date: 20041013
  Transmission Date: 20050328
  Serious: Yes (Other)
  Sender: FDA-Public Use
  Company Number: 200410268BFR

PATIENT
  Age: 51 Year
  Sex: Male
  Weight: 70 kg

DRUGS (7)
  1. CIPROFLOXACIN HCL [Suspect]
     Indication: EPIDIDYMITIS
     Dosage: 1 G , TOTAL DAILY, ORAL
     Route: 048
     Dates: start: 20040423, end: 20040430
  2. LAMISIL [Concomitant]
  3. BACTRIM [Concomitant]
  4. ORACILLINE [Concomitant]
  5. ROCEPHIN [Concomitant]
  6. GENTAMYCIN SULFATE [Concomitant]
  7. LOWER MOLECULAR WEIGHT HEPARIN [Concomitant]

REACTIONS (15)
  - AMAUROSIS FUGAX [None]
  - ARTHRALGIA [None]
  - C-REACTIVE PROTEIN INCREASED [None]
  - CHILLS [None]
  - CONDITION AGGRAVATED [None]
  - EYE DISORDER [None]
  - FATIGUE [None]
  - HEPATITIS [None]
  - HEPATOMEGALY [None]
  - HOARSENESS [None]
  - INFECTION [None]
  - MIGRAINE WITH AURA [None]
  - MUSCULOSKELETAL STIFFNESS [None]
  - MYALGIA [None]
  - PYREXIA [None]
